FAERS Safety Report 6900585-7 (Version None)
Quarter: 2010Q3

REPORT INFORMATION
  Report Type: 
  Country: None (occurrence: None)
  Receive Date: 20100803
  Receipt Date: 20100719
  Transmission Date: 20110219
  Serious: Yes (Other)
  Sender: FDA-Public Use
  Company Number: PHHY2010DK17879

PATIENT
  Sex: Female
  Weight: 60 kg

DRUGS (4)
  1. RITALIN TAB [Suspect]
     Indication: ATTENTION DEFICIT/HYPERACTIVITY DISORDER
     Dosage: 20 MG, UNK
     Route: 048
     Dates: start: 20090201
  2. RITALIN [Suspect]
     Indication: ATTENTION DEFICIT/HYPERACTIVITY DISORDER
     Dosage: 10 MG, UNK
     Route: 048
     Dates: start: 20090101, end: 20090201
  3. CONCERTA [Suspect]
     Indication: ATTENTION DEFICIT/HYPERACTIVITY DISORDER
     Dosage: 2 X 36 MG
     Route: 048
     Dates: start: 20090601
  4. STRATTERA [Suspect]
     Dosage: UNK

REACTIONS (2)
  - DECREASED IMMUNE RESPONSIVENESS [None]
  - SKIN PAPILLOMA [None]
